FAERS Safety Report 6683767-1 (Version None)
Quarter: 2010Q2

REPORT INFORMATION
  Report Type: 
  Country: None (occurrence: None)
  Receive Date: 20100416
  Receipt Date: 20100406
  Transmission Date: 20101027
  Serious: No
  Sender: FDA-Public Use
  Company Number: US-BIOGENIDEC-2010BI011229

PATIENT
  Age: 39 Year
  Sex: Male

DRUGS (1)
  1. AVONEX [Suspect]
     Indication: MULTIPLE SCLEROSIS
     Route: 030
     Dates: start: 20090301

REACTIONS (7)
  - ANGER [None]
  - APATHY [None]
  - BURNING SENSATION [None]
  - DEPRESSED MOOD [None]
  - FRUSTRATION [None]
  - GENERAL SYMPTOM [None]
  - MULTIPLE SCLEROSIS RELAPSE [None]
